FAERS Safety Report 7111504-5 (Version None)
Quarter: 2010Q4

REPORT INFORMATION
  Report Type: 
  Country: None (occurrence: None)
  Receive Date: 20101118
  Receipt Date: 20101111
  Transmission Date: 20110411
  Serious: Yes (Other)
  Sender: FDA-Public Use
  Company Number: IT-PFIZER INC-2010146559

PATIENT
  Age: 40 Year
  Sex: Female

DRUGS (5)
  1. ZITROMAX [Suspect]
     Indication: SINUSITIS
     Dosage: 1 UNIT DOSE, DAILY
     Route: 048
     Dates: start: 20100504, end: 20100510
  2. FLUIMUCIL [Concomitant]
  3. CLENIL [Concomitant]
  4. CEBION [Concomitant]
  5. ANASTEN PLUS [Concomitant]

REACTIONS (1)
  - DYSENTERY [None]
